FAERS Safety Report 7927512-8 (Version None)
Quarter: 2011Q4

REPORT INFORMATION
  Report Type: 
  Country: None (occurrence: None)
  Receive Date: 20111118
  Receipt Date: 20110818
  Transmission Date: 20120403
  Serious: No
  Sender: FDA-Public Use
  Company Number: US-BAYER-2011-079345

PATIENT
  Sex: Female

DRUGS (3)
  1. ALEVE (CAPLET) [Suspect]
     Indication: MYALGIA
     Dosage: UNK
     Dates: start: 20110801
  2. ATIVAN [Concomitant]
  3. TAXOTERE [Concomitant]
     Indication: BREAST CANCER

REACTIONS (2)
  - CONSTIPATION [None]
  - MYALGIA [None]
